FAERS Safety Report 23046769 (Version 1)
Quarter: 2023Q4

REPORT INFORMATION
  Report Type: Report from Study
  Country: BR (occurrence: BR)
  Receive Date: 20231009
  Receipt Date: 20231009
  Transmission Date: 20240110
  Serious: Yes (Other)
  Sender: FDA-Public Use
  Company Number: BR-BAYER-2023A140938

PATIENT
  Age: 34 Year
  Sex: Male

DRUGS (2)
  1. STIVARGA [Suspect]
     Active Substance: REGORAFENIB
     Indication: Appendix cancer
     Dosage: UNK
     Dates: start: 20230811
  2. DEXAMETHASONE [Concomitant]
     Active Substance: DEXAMETHASONE
     Indication: Swelling
     Dosage: 2 TABLETS EVERY MORNING.

REACTIONS (14)
  - Myocardial infarction [Not Recovered/Not Resolved]
  - Loss of consciousness [None]
  - Syncope [None]
  - Acne [None]
  - Palmar-plantar erythrodysaesthesia syndrome [None]
  - Lip pain [Not Recovered/Not Resolved]
  - Increased appetite [Not Recovered/Not Resolved]
  - Heart rate increased [None]
  - Visual impairment [None]
  - Faeces discoloured [None]
  - Lip injury [None]
  - Lip dry [None]
  - Oral discomfort [None]
  - Burning sensation [None]

NARRATIVE: CASE EVENT DATE: 20230801
